FAERS Safety Report 7298813-4 (Version None)
Quarter: 2011Q1

REPORT INFORMATION
  Report Type: 
  Country: None (occurrence: None)
  Receive Date: 20110217
  Receipt Date: 20110214
  Transmission Date: 20110831
  Serious: Yes (Life-Threatening, Hospitalization)
  Sender: FDA-Public Use
  Company Number: DE-B.I. PHARMACEUTICALS,INC./RIDGEFIELD-2011-DE-00898DE

PATIENT
  Age: 57 Year
  Sex: Female
  Weight: 110 kg

DRUGS (7)
  1. REWODINA [Suspect]
     Indication: BACK PAIN
     Dosage: 50 MG
     Route: 048
     Dates: start: 20100608, end: 20100610
  2. VOLTAREN [Suspect]
     Indication: BACK PAIN
     Dosage: 25 MG
     Route: 048
     Dates: start: 20100605, end: 20100607
  3. MICARDIS HCT [Suspect]
     Indication: HYPERTENSION
     Dosage: 1 ANZ
     Route: 048
     Dates: start: 20080601, end: 20100610
  4. MUSARIL [Concomitant]
     Indication: MUSCLE TIGHTNESS
     Dosage: 100 MG
     Route: 048
     Dates: start: 20100608, end: 20100610
  5. L-THYROX [Concomitant]
     Indication: HYPOTHYROIDISM
     Dosage: 75 MCG
     Route: 048
     Dates: start: 20080601
  6. NORVASC [Concomitant]
     Indication: HYPERTENSION
     Dosage: 5 MG
     Route: 048
     Dates: start: 20100401
  7. BISOHEXAL [Concomitant]
     Indication: HYPERTENSION
     Dosage: 5 MG
     Route: 048
     Dates: start: 20080601

REACTIONS (1)
  - ANAEMIA HAEMOLYTIC AUTOIMMUNE [None]
